FAERS Safety Report 7366972-0 (Version None)
Quarter: 2011Q1

REPORT INFORMATION
  Report Type: 
  Country: None (occurrence: None)
  Receive Date: 20110322
  Receipt Date: 20110316
  Transmission Date: 20110831
  Serious: Yes (Other)
  Sender: FDA-Public Use
  Company Number: TR-PFIZER INC-2011055803

PATIENT
  Age: 50 Year
  Sex: Male

DRUGS (5)
  1. ASPIRIN [Concomitant]
     Dosage: 300 MG, UNK
  2. CYCLOPENTOLATE [Concomitant]
     Dosage: 1 %, 3X/DAY
     Route: 061
  3. ACYCLOVIR [Concomitant]
     Dosage: 1500 MG/M2/DAILY IN 3 DIVIDED DOSES
  4. PREDNISOLONE [Suspect]
     Dosage: 10 MG, UNK
  5. PREDNISOLONE [Suspect]
     Dosage: 60 MG, UNK

REACTIONS (1)
  - RETINAL VASCULAR DISORDER [None]
